FAERS Safety Report 9387187 (Version 1)
Quarter: 2013Q3

REPORT INFORMATION
  Report Type: Spontaneous
  Country: DE (occurrence: None)
  Receive Date: 20130702
  Receipt Date: 20130702
  Transmission Date: 20140515
  Serious: Yes (Hospitalization, Other)
  Sender: FDA-Public Use
  Company Number: GER/GER/13/0030257

PATIENT
  Sex: Female
  Weight: 2.7 kg

DRUGS (2)
  1. LAMOTRIGINE (LAMOTRIGINE) [Suspect]
     Indication: PRODUCT USED FOR UNKNOWN INDICATION
     Dosage: 1 D
     Route: 064
     Dates: start: 20070330
  2. THYRONAJOD (JODTHYROX) [Concomitant]

REACTIONS (6)
  - Maternal drugs affecting foetus [None]
  - Caesarean section [None]
  - Skin discolouration [None]
  - Agitation neonatal [None]
  - Apnoea neonatal [None]
  - Oxygen saturation decreased [None]
